FAERS Safety Report 5516261-1 (Version None)
Quarter: 2007Q4

REPORT INFORMATION
  Report Type: 
  Country: None (occurrence: None)
  Receive Date: 20071114
  Receipt Date: 20070207
  Transmission Date: 20080405
  Serious: No
  Sender: FDA-Public Use
  Company Number: A0635629A

PATIENT
  Age: 36 Year
  Sex: Female

DRUGS (1)
  1. COMMIT [Suspect]
     Dosage: 4MG UNKNOWN
     Route: 002
     Dates: start: 20070114

REACTIONS (8)
  - DYSPNOEA [None]
  - HYPERSENSITIVITY [None]
  - LIP SWELLING [None]
  - PRURITUS [None]
  - PRURITUS GENERALISED [None]
  - RASH [None]
  - THROAT TIGHTNESS [None]
  - URTICARIA [None]
